FAERS Safety Report 6634291-3 (Version None)
Quarter: 2010Q1

REPORT INFORMATION
  Report Type: 
  Country: None (occurrence: None)
  Receive Date: 20100225
  Receipt Date: 20090902
  Transmission Date: 20100710
  Serious: Yes (Other)
  Sender: FDA-Public Use
  Company Number: 654438

PATIENT
  Age: 23 Year
  Sex: Male

DRUGS (1)
  1. ACCUTANE [Suspect]
     Indication: SKIN DISORDER
     Dates: start: 19980101, end: 20030101

REACTIONS (4)
  - DEPRESSION [None]
  - LIP SWELLING [None]
  - PHOTOPHOBIA [None]
  - SKIN DISORDER [None]
